FAERS Safety Report 9964964 (Version 1)
Quarter: 2014Q1

REPORT INFORMATION
  Report Type: Report from Study
  Country: US (occurrence: US)
  Receive Date: 20140305
  Receipt Date: 20140305
  Transmission Date: 20141002
  Serious: No
  Sender: FDA-Public Use
  Company Number: US-ABBVIE-13P-163-1128190-00

PATIENT
  Age: 78 Year
  Sex: Male
  Weight: 99.88 kg

DRUGS (7)
  1. HUMIRA [Suspect]
     Indication: RHEUMATOID ARTHRITIS
     Route: 058
     Dates: start: 201210
  2. CARVEDILOL [Concomitant]
     Indication: PRODUCT USED FOR UNKNOWN INDICATION
  3. LOSARTAN [Concomitant]
     Indication: PRODUCT USED FOR UNKNOWN INDICATION
  4. SIMVASTATIN [Concomitant]
     Indication: BLOOD CHOLESTEROL INCREASED
  5. ALLOPURINOL [Concomitant]
     Indication: GOUT
  6. HUMULIN R [Concomitant]
     Indication: DIABETES MELLITUS
  7. HUMULIN N [Concomitant]
     Indication: DIABETES MELLITUS

REACTIONS (1)
  - Injection site pain [Not Recovered/Not Resolved]
